FAERS Safety Report 13058153 (Version 1)
Quarter: 2016Q4

REPORT INFORMATION
  Report Type: Spontaneous
  Country: BR (occurrence: BR)
  Receive Date: 20161223
  Receipt Date: 20161223
  Transmission Date: 20170207
  Serious: Yes (Hospitalization)
  Sender: FDA-Public Use
  Company Number: BR-JNJFOC-20161218299

PATIENT
  Sex: Female

DRUGS (5)
  1. SIMETHICONE (DIMETHICONE) [Concomitant]
     Active Substance: DIMETHICONE
     Route: 065
  2. IMOSEC [Suspect]
     Active Substance: LOPERAMIDE
     Indication: MEGACOLON
     Dosage: HAD BEEN USING THE MEDICATION SINCE 3-4 YEARS AGO (FROM THE TIME OF THIS REPORT).
     Route: 065
  3. OMEPRAZOLE. [Concomitant]
     Active Substance: OMEPRAZOLE
     Route: 065
  4. LORAZEPAN [Concomitant]
     Active Substance: LORAZEPAM
     Route: 065
  5. IMOSEC [Suspect]
     Active Substance: LOPERAMIDE
     Route: 065

REACTIONS (5)
  - Gastrooesophageal reflux disease [Unknown]
  - Dysgeusia [Unknown]
  - Product use issue [Unknown]
  - Incorrect dose administered [Unknown]
  - Hospitalisation [Unknown]
